FAERS Safety Report 7685613-6 (Version None)
Quarter: 2011Q3

REPORT INFORMATION
  Report Type: 
  Country: None (occurrence: None)
  Receive Date: 20110816
  Receipt Date: 20110805
  Transmission Date: 20111222
  Serious: Yes (Disabling, Other)
  Sender: FDA-Public Use
  Company Number: PHHY2011BR71891

PATIENT

DRUGS (3)
  1. ATENOLOL [Suspect]
     Route: 048
  2. BROMAZEPAM [Concomitant]
     Route: 048
  3. DIOVAN [Concomitant]
     Dosage: 120 MG, UNK
     Route: 048

REACTIONS (4)
  - JOINT SWELLING [None]
  - ABASIA [None]
  - BLOOD PRESSURE INCREASED [None]
  - DRUG INEFFECTIVE [None]
